FAERS Safety Report 5473229-1 (Version None)
Quarter: 2007Q4

REPORT INFORMATION
  Report Type: 
  Country: None (occurrence: None)
  Receive Date: 20071001
  Receipt Date: 20070919
  Transmission Date: 20080405
  Serious: Yes (Hospitalization)
  Sender: FDA-Public Use
  Company Number: DE-ROCHE-497452

PATIENT
  Age: 56 Year
  Sex: Female
  Weight: 65.6 kg

DRUGS (4)
  1. PEG-INTERFERON A-2A (RO 25-8310) [Suspect]
     Route: 058
     Dates: start: 20061117
  2. RIBAVIRIN [Suspect]
     Route: 048
     Dates: start: 20061118, end: 20070101
  3. RIBAVIRIN [Suspect]
     Route: 048
     Dates: start: 20070102, end: 20070611
  4. RIBAVIRIN [Suspect]
     Route: 048
     Dates: start: 20070612

REACTIONS (1)
  - HYPOTENSION [None]
